FAERS Safety Report 10216877 (Version 1)
Quarter: 2014Q2

REPORT INFORMATION
  Report Type: Spontaneous
  Country: US (occurrence: US)
  Receive Date: 20140604
  Receipt Date: 20140604
  Transmission Date: 20141212
  Serious: Yes (Hospitalization, Other)
  Sender: FDA-Public Use
  Company Number: US-SA-2014SA070123

PATIENT
  Age: 16 Month
  Sex: Male

DRUGS (3)
  1. CEREZYME [Suspect]
     Indication: GAUCHER^S DISEASE
     Route: 042
     Dates: start: 20131105
  2. ZOFRAN [Concomitant]
     Indication: PREMEDICATION
     Dosage: PRETREATED EVERY THIRD TIME
  3. THEOPHYLLINE [Concomitant]
     Indication: NEOPLASM MALIGNANT

REACTIONS (3)
  - Dehydration [Not Recovered/Not Resolved]
  - Anuria [Not Recovered/Not Resolved]
  - Vomiting [Not Recovered/Not Resolved]
